FAERS Safety Report 12478370 (Version 1)
Quarter: 2016Q2

REPORT INFORMATION
  Report Type: Report from Study
  Country: US (occurrence: US)
  Receive Date: 20160618
  Receipt Date: 20160618
  Transmission Date: 20160815
  Serious: No
  Sender: FDA-Public Use
  Company Number: US-009507513-1606USA000764

PATIENT
  Sex: Female

DRUGS (4)
  1. METFORMIN [Concomitant]
     Active Substance: METFORMIN HYDROCHLORIDE
  2. TOUJEO [Concomitant]
     Active Substance: INSULIN GLARGINE
  3. JANUVIA [Suspect]
     Active Substance: SITAGLIPTIN PHOSPHATE
     Route: 048
  4. GLIMEPIRIDE. [Concomitant]
     Active Substance: GLIMEPIRIDE

REACTIONS (3)
  - Glycosylated haemoglobin decreased [Unknown]
  - Weight increased [Unknown]
  - Blood glucose fluctuation [Unknown]
